FAERS Safety Report 5384195-1 (Version None)
Quarter: 2007Q3

REPORT INFORMATION
  Report Type: 
  Country: None (occurrence: None)
  Receive Date: 20070711
  Receipt Date: 20070706
  Transmission Date: 20080115
  Serious: Yes (Hospitalization)
  Sender: FDA-Public Use
  Company Number: B0466548A

PATIENT
  Age: 67 Year
  Sex: Male
  Weight: 69 kg

DRUGS (14)
  1. MODACIN [Suspect]
     Indication: SPONDYLITIS
     Route: 042
     Dates: start: 20070314, end: 20070402
  2. MINOCYCLINE HCL [Suspect]
     Indication: SPONDYLITIS
     Dosage: 100MG TWICE PER DAY
     Route: 048
     Dates: start: 20070228, end: 20070412
  3. ALPROSTADIL [Suspect]
     Indication: ARTERIOSCLEROSIS OBLITERANS
     Route: 042
     Dates: start: 20070223, end: 20070412
  4. MUCOSTA [Suspect]
     Indication: GASTRIC MUCOSAL LESION
     Dosage: 100MG THREE TIMES PER DAY
     Route: 048
     Dates: start: 20070223, end: 20070410
  5. ANPLAG [Suspect]
     Indication: PAIN
     Dosage: 100MG THREE TIMES PER DAY
     Route: 048
     Dates: start: 20070223, end: 20070410
  6. LORCAM [Concomitant]
     Route: 048
  7. CEFMETAZON [Concomitant]
     Indication: SPONDYLITIS
     Dosage: 2G PER DAY
     Route: 042
     Dates: start: 20070228, end: 20070314
  8. TIENAM [Concomitant]
     Indication: SPONDYLITIS
     Dosage: 2G PER DAY
     Route: 042
     Dates: start: 20070412
  9. NEOLAMIN [Concomitant]
     Indication: NEUROPATHY PERIPHERAL
     Route: 042
     Dates: start: 20070223
  10. NEUROTROPIN [Concomitant]
     Indication: BACK PAIN
     Route: 042
     Dates: start: 20070223
  11. LORCAM [Concomitant]
     Indication: BACK PAIN
     Dosage: 12MG PER DAY
     Route: 048
     Dates: start: 20070223, end: 20070305
  12. CYANOCOBALAMIN [Concomitant]
     Indication: NEUROPATHY PERIPHERAL
     Dosage: 1500MCG PER DAY
     Route: 048
     Dates: start: 20070223
  13. MYONAL [Concomitant]
     Indication: BACK PAIN
     Dosage: 150MG PER DAY
     Route: 048
     Dates: start: 20070223
  14. UNKNOWN MEDICATION [Concomitant]
     Indication: DIABETES MELLITUS
     Route: 048
     Dates: start: 20070223

REACTIONS (9)
  - BLOOD CREATININE DECREASED [None]
  - C-REACTIVE PROTEIN INCREASED [None]
  - DRUG INEFFECTIVE [None]
  - HAEMATOCRIT DECREASED [None]
  - HAEMOGLOBIN DECREASED [None]
  - LEUKOPENIA [None]
  - LYMPHOPENIA [None]
  - MONOCYTE COUNT INCREASED [None]
  - RED BLOOD CELL COUNT DECREASED [None]
